FAERS Safety Report 21156536 (Version 1)
Quarter: 2022Q3

REPORT INFORMATION
  Report Type: Spontaneous
  Country: US (occurrence: US)
  Receive Date: 20220801
  Receipt Date: 20220801
  Transmission Date: 20221027
  Serious: No
  Sender: FDA-Public Use
  Company Number: US-PADAGIS-2022PAD00226

PATIENT

DRUGS (1)
  1. EVAMIST [Suspect]
     Active Substance: ESTRADIOL
     Indication: Hormone therapy
     Dosage: UNK
     Route: 065

REACTIONS (6)
  - Hormone level abnormal [None]
  - Breast tenderness [None]
  - Vaginal haemorrhage [None]
  - Fatigue [None]
  - Abdominal distension [None]
  - Drug ineffective [Unknown]
